FAERS Safety Report 12471669 (Version 2)
Quarter: 2016Q2

REPORT INFORMATION
  Report Type: Report from Study
  Country: BG (occurrence: BG)
  Receive Date: 20160616
  Receipt Date: 20160629
  Transmission Date: 20160815
  Serious: Yes (Hospitalization)
  Sender: FDA-Public Use
  Company Number: BG-ABBVIE-16P-022-1645589-00

PATIENT
  Age: 67 Year
  Sex: Male
  Weight: 83 kg

DRUGS (15)
  1. CARSIL MAX [Concomitant]
     Indication: PROPHYLAXIS
     Route: 048
  2. PARACETAMOL [Concomitant]
     Active Substance: ACETAMINOPHEN
     Route: 048
     Dates: start: 20160516, end: 20160516
  3. LORATADINE. [Concomitant]
     Active Substance: LORATADINE
     Indication: PROPHYLAXIS
     Route: 048
     Dates: start: 20160503, end: 20160503
  4. MILURIT [Concomitant]
     Active Substance: ALLOPURINOL
     Indication: PROPHYLAXIS
     Route: 048
     Dates: start: 20160417
  5. GA101 [Suspect]
     Active Substance: OBINUTUZUMAB
     Indication: CHRONIC LYMPHOCYTIC LEUKAEMIA
     Dosage: DATE OF MOST RECENT DOSE OF OBINUTUZUMAB PRIOR TO AE 16/MAY/2016 (1000 MG,1
     Route: 042
     Dates: start: 20160418
  6. METHYLPREDNISOLONE. [Concomitant]
     Active Substance: METHYLPREDNISOLONE
     Route: 042
     Dates: start: 20160516, end: 20160516
  7. CHLORAMBUCIL [Suspect]
     Active Substance: CHLORAMBUCIL
     Indication: CHRONIC LYMPHOCYTIC LEUKAEMIA
     Dosage: DATE OF MOST RECENT DOSE OF CHLORAMBUCIL PRIOR TO AE: 16/MAY/2016 (40 MG,1
     Route: 048
     Dates: start: 20160418
  8. LORATADINE. [Concomitant]
     Active Substance: LORATADINE
     Indication: PROPHYLAXIS
     Route: 048
     Dates: start: 20160516, end: 20160516
  9. CARSIL MAX [Concomitant]
     Indication: HEPATITIS B
  10. VENETOCLAX [Suspect]
     Active Substance: VENETOCLAX
     Indication: CHRONIC LYMPHOCYTIC LEUKAEMIA
     Route: 048
  11. PARACETAMOL [Concomitant]
     Active Substance: ACETAMINOPHEN
     Indication: PROPHYLAXIS
     Route: 048
     Dates: start: 20160503, end: 20160503
  12. METHYLPREDNISOLONE. [Concomitant]
     Active Substance: METHYLPREDNISOLONE
     Indication: PROPHYLAXIS
     Route: 042
     Dates: start: 20160503
  13. QUAMATEL [Concomitant]
     Active Substance: FAMOTIDINE
     Indication: PROPHYLAXIS
     Route: 042
     Dates: start: 20160503, end: 20160503
  14. QUAMATEL [Concomitant]
     Active Substance: FAMOTIDINE
     Route: 042
     Dates: start: 20160516, end: 20160516
  15. LORATADINE. [Concomitant]
     Active Substance: LORATADINE
     Route: 048
     Dates: start: 20160516, end: 20160516

REACTIONS (2)
  - Alanine aminotransferase increased [Not Recovered/Not Resolved]
  - Aspartate aminotransferase increased [Not Recovered/Not Resolved]

NARRATIVE: CASE EVENT DATE: 20160530
